FAERS Safety Report 5001695-4 (Version None)
Quarter: 2006Q2

REPORT INFORMATION
  Report Type: 
  Country: None (occurrence: None)
  Receive Date: 20060515
  Receipt Date: 20060503
  Transmission Date: 20061013
  Serious: Yes (Disabling)
  Sender: FDA-Public Use
  Company Number: 2006GB00756

PATIENT
  Sex: Female

DRUGS (4)
  1. FASLODEX [Suspect]
     Indication: BREAST CANCER
     Route: 030
     Dates: start: 20060401
  2. FRUSEMIDE [Concomitant]
  3. LAXATIVES [Concomitant]
  4. MORPHINE [Concomitant]

REACTIONS (1)
  - SPINAL CORD COMPRESSION [None]
